FAERS Safety Report 21541448 (Version 1)
Quarter: 2022Q4

REPORT INFORMATION
  Report Type: Report from Study
  Country: US (occurrence: None)
  Receive Date: 20221102
  Receipt Date: 20221102
  Transmission Date: 20230113
  Serious: Yes (Death, Hospitalization, Other)
  Sender: FDA-Public Use
  Company Number: 2022A359374

PATIENT
  Age: 32627 Day
  Sex: Female

DRUGS (1)
  1. CALQUENCE [Suspect]
     Active Substance: ACALABRUTINIB
     Indication: Chronic lymphocytic leukaemia
     Route: 048

REACTIONS (5)
  - Death [Fatal]
  - Dehydration [Not Recovered/Not Resolved]
  - Hypophagia [Unknown]
  - Malignant neoplasm progression [Unknown]
  - Renal impairment [Unknown]

NARRATIVE: CASE EVENT DATE: 20221020
